FAERS Safety Report 8333793-1 (Version None)
Quarter: 2012Q2

REPORT INFORMATION
  Report Type: 
  Country: None (occurrence: None)
  Receive Date: 20120503
  Receipt Date: 20120423
  Transmission Date: 20120825
  Serious: Yes (Other)
  Sender: FDA-Public Use
  Company Number: US-ELI_LILLY_AND_COMPANY-US201204008541

PATIENT
  Age: 65 Year

DRUGS (1)
  1. FORTEO [Suspect]
     Indication: OSTEOPOROSIS

REACTIONS (5)
  - DECREASED APPETITE [None]
  - NAUSEA [None]
  - FATIGUE [None]
  - KNEE ARTHROPLASTY [None]
  - DIZZINESS [None]
